FAERS Safety Report 13682091 (Version 2)
Quarter: 2019Q1

REPORT INFORMATION
  Report Type: Spontaneous
  Country: US (occurrence: US)
  Receive Date: 20170623
  Receipt Date: 20190304
  Transmission Date: 20190417
  Serious: No
  Sender: FDA-Public Use
  Company Number: US-BAUSCH-BL-2017-006158

PATIENT
  Age: 65 Year
  Sex: Female

DRUGS (1)
  1. JUBLIA [Suspect]
     Active Substance: EFINACONAZOLE
     Indication: ONYCHOMYCOSIS
     Dosage: ONE APPLICATION TO THE FIRST TWO TOES ON EACH FOOT ONCE DAILY
     Route: 061
     Dates: start: 2016

REACTIONS (3)
  - Skin irritation [Unknown]
  - Drug effect incomplete [Unknown]
  - Nail discolouration [Unknown]
